FAERS Safety Report 7584434-2 (Version None)
Quarter: 2011Q2

REPORT INFORMATION
  Report Type: 
  Country: None (occurrence: None)
  Receive Date: 20110630
  Receipt Date: 20110623
  Transmission Date: 20111010
  Serious: Yes (Hospitalization)
  Sender: FDA-Public Use
  Company Number: FR-PFIZER INC-2011139628

PATIENT
  Age: 56 Year
  Sex: Male
  Weight: 62 kg

DRUGS (3)
  1. IRINOTECAN HCL [Suspect]
     Indication: GASTRIC CANCER
  2. LEUCOVORIN CALCIUM [Suspect]
     Indication: GASTRIC CANCER
  3. FLUOROURACIL [Suspect]
     Indication: GASTRIC CANCER

REACTIONS (1)
  - JEJUNAL STENOSIS [None]
